FAERS Safety Report 4661720-7 (Version None)
Quarter: 2005Q2

REPORT INFORMATION
  Report Type: 
  Country: None (occurrence: None)
  Receive Date: 20050513
  Receipt Date: 20041006
  Transmission Date: 20051028
  Serious: Yes (Disabling)
  Sender: FDA-Public Use
  Company Number: US-ROCHE-382755

PATIENT
  Age: 59 Year
  Sex: Female
  Weight: 90.7 kg

DRUGS (2)
  1. PEGASYS [Suspect]
     Route: 058
     Dates: start: 20040723
  2. RIBAVIRIN [Suspect]
     Dosage: REPORTED AS 4/DAY.
     Route: 048
     Dates: start: 20040723

REACTIONS (3)
  - DEAFNESS [None]
  - DEAFNESS NEUROSENSORY [None]
  - DEAFNESS TRANSITORY [None]
